FAERS Safety Report 8336809-1 (Version None)
Quarter: 2012Q2

REPORT INFORMATION
  Report Type: 
  Country: None (occurrence: None)
  Receive Date: 20120501
  Receipt Date: 20120416
  Transmission Date: 20120825
  Serious: Yes (Other)
  Sender: FDA-Public Use
  Company Number: 2012-191

PATIENT
  Sex: Female

DRUGS (4)
  1. BUPIVACAINE HCL [Suspect]
     Dosage: UNK MG, ONCE/HOUR, INTRATHECAL
     Route: 037
  2. FENTANYL [Suspect]
     Dosage: UNK UG, ONCE/HOUR, INTRATHECAL
     Route: 037
  3. MORPHINE [Suspect]
     Dosage: UNK MG, ONCE/HOUR, INTRATHECAL
     Route: 037
  4. PRIALT [Suspect]
     Dosage: UNK UG, ONCE/HOUR, INTRATHECAL
     Route: 037

REACTIONS (8)
  - ABDOMINAL DISCOMFORT [None]
  - DEEP VEIN THROMBOSIS [None]
  - PAIN [None]
  - BURNING SENSATION [None]
  - SYNCOPE [None]
  - GLOSSODYNIA [None]
  - HEADACHE [None]
  - GASTROINTESTINAL HYPOMOTILITY [None]
